FAERS Safety Report 8497325-X (Version None)
Quarter: 2012Q3

REPORT INFORMATION
  Report Type: 
  Country: None (occurrence: None)
  Receive Date: 20120709
  Receipt Date: 20120608
  Transmission Date: 20120928
  Serious: No
  Sender: FDA-Public Use
  Company Number: US-AMGEN-USASP2012035931

PATIENT
  Age: 56 Year
  Sex: Male

DRUGS (4)
  1. FOLIC ACID [Concomitant]
  2. ENBREL [Suspect]
     Indication: RHEUMATOID ARTHRITIS
     Dosage: 50 MG, QWK
     Dates: start: 20120101
  3. PREDNISONE [Concomitant]
  4. METHOTREXATE [Concomitant]
     Dosage: UNK

REACTIONS (5)
  - CONTUSION [None]
  - FOOD AVERSION [None]
  - NAUSEA [None]
  - ABDOMINAL PAIN UPPER [None]
  - DECREASED APPETITE [None]
